FAERS Safety Report 21330833 (Version 3)
Quarter: 2022Q4

REPORT INFORMATION
  Report Type: Spontaneous
  Country: PT (occurrence: PT)
  Receive Date: 20220914
  Receipt Date: 20221003
  Transmission Date: 20230112
  Serious: Yes (Death)
  Sender: FDA-Public Use
  Company Number: PT-STADA-257404

PATIENT
  Age: 25 Year
  Sex: Male

DRUGS (5)
  1. TOPAMAX [Interacting]
     Active Substance: TOPIRAMATE
     Indication: Product used for unknown indication
     Route: 048
  2. TRAMADOL HYDROCHLORIDE [Interacting]
     Active Substance: TRAMADOL HYDROCHLORIDE
     Indication: Product used for unknown indication
     Route: 065
  3. MIANSERIN [Suspect]
     Active Substance: MIANSERIN
     Indication: Product used for unknown indication
     Route: 065
  4. LEVOMEPROMAZINE [Suspect]
     Active Substance: LEVOMEPROMAZINE
     Indication: Product used for unknown indication
     Route: 065
  5. BROMAZEPAM [Suspect]
     Active Substance: BROMAZEPAM
     Indication: Product used for unknown indication
     Route: 065

REACTIONS (3)
  - Drug abuse [Fatal]
  - Toxicity to various agents [Fatal]
  - Drug interaction [Fatal]
